FAERS Safety Report 12228754 (Version 1)
Quarter: 2016Q1

REPORT INFORMATION
  Report Type: Spontaneous
  Country: US (occurrence: None)
  Receive Date: 20160331
  Receipt Date: 20160331
  Transmission Date: 20160526
  Serious: No
  Sender: FDA-Public Use
  Company Number: None

PATIENT
  Age: 16 Year
  Sex: Female
  Weight: 60.78 kg

DRUGS (3)
  1. VYVANSE [Concomitant]
     Active Substance: LISDEXAMFETAMINE DIMESYLATE
  2. BIRTH CONTROL [Concomitant]
     Active Substance: UNSPECIFIED INGREDIENT
  3. FML FLUOROMETHOLONE OPHTHALMIC O, 0.1 % [Suspect]
     Active Substance: FLUOROMETHOLONE
     Indication: ECZEMA
     Dosage: 1 TUBE TWICE A DAY APPLIED AS MEDICATED PATCH TO SKIN
     Route: 061
     Dates: start: 20160326, end: 20160326

REACTIONS (7)
  - Application site swelling [None]
  - Deafness [None]
  - Vision blurred [None]
  - Rash [None]
  - Throat tightness [None]
  - Application site pain [None]
  - Vomiting [None]

NARRATIVE: CASE EVENT DATE: 20160328
